FAERS Safety Report 8134256-9 (Version None)
Quarter: 2012Q1

REPORT INFORMATION
  Report Type: 
  Country: None (occurrence: None)
  Receive Date: 20120201
  Receipt Date: 20120123
  Transmission Date: 20120608
  Serious: Yes (Hospitalization)
  Sender: FDA-Public Use
  Company Number: 2012030881

PATIENT
  Age: 84 Year
  Sex: Female
  Weight: 44.9061 kg

DRUGS (17)
  1. LOPRESSOR [Concomitant]
  2. TRAZODONE HCL [Concomitant]
  3. ACETAMINOPHEN [Concomitant]
  4. ASPIRIN [Concomitant]
  5. POTASSIUM CHLORIDE [Concomitant]
  6. HIZENTRA [Suspect]
     Indication: IMMUNODEFICIENCY COMMON VARIABLE
     Dosage: (10 G 1X/WEEK, (50 ML) 3-4 SITES OVER 1-2 HOURS SUBCUTANEOUS), (SUBCUTANEOUS)
     Route: 058
  7. DUONEB [Concomitant]
  8. MUCINEX [Concomitant]
  9. HIZENTRA [Suspect]
  10. MEGESTROL ACETATE [Concomitant]
  11. CHOLESTYRAMINE (COLESTYRAMINE) () [Concomitant]
  12. PULMICORT [Concomitant]
  13. SALINE NASAL SPRAY (SODIUM CHLORIDE) () [Concomitant]
  14. ALBUTEROL [Concomitant]
  15. OMEPRAZOLE [Concomitant]
  16. NASONEX [Concomitant]
  17. PROCHLORPERZINE (PROCHLORPERAZINE) () [Concomitant]

REACTIONS (1)
  - RESPIRATORY TRACT INFECTION [None]
